FAERS Safety Report 8464741 (Version 4)
Quarter: 2012Q4

REPORT INFORMATION
  Report Type: Spontaneous
  Country: US (occurrence: None)
  Receive Date: 20120308
  Receipt Date: 20121106
  Transmission Date: 20130627
  Serious: Yes (Other)
  Sender: FDA-Public Use
  Company Number: 2012031427

PATIENT
  Sex: Female
  Weight: 113.4 kg

DRUGS (21)
  1. BERINERT [Suspect]
     Indication: HEREDITARY ANGIOEDEMA
     Dosage: (2000 units Intravenous (not otherwise specified))
     Route: 042
  2. BERINERT [Suspect]
     Indication: HEREDITARY ANGIOEDEMA
     Dosage: SEE IMAGE
     Route: 042
     Dates: start: 20120204
  3. BERINERT [Suspect]
     Indication: HEREDITARY ANGIOEDEMA
     Dosage: SEE IMAGE
     Route: 042
     Dates: start: 20120205
  4. BERINERT [Suspect]
     Indication: HEREDITARY ANGIOEDEMA
     Dosage: (2000 units Intravenous (not otherwise specified))
     Route: 042
     Dates: start: 20120214
  5. CINRYZE [Suspect]
     Indication: HEREDITARY ANGIOEDEMA
     Dosage: (??-Jan-2012; 2000 units; every 3 days Intravenous (not otherwise specified))
     Route: 042
     Dates: start: 20120110
  6. CINRYZE [Suspect]
     Indication: HEREDITARY ANGIOEDEMA
     Dosage: (??-Jan-2012; 2000 units; every 3 days Intravenous (not otherwise specified))
     Route: 042
     Dates: start: 20120110
  7. CINRYZE [Suspect]
     Indication: HEREDITARY ANGIOEDEMA
     Dosage: (1000 UNITS EVERY THREE DAYS)
     Dates: start: 20120218
  8. CINRYZE [Suspect]
     Indication: HEREDITARY ANGIOEDEMA
     Dosage: (1000 UNITS EVERY THREE DAYS)
     Dates: start: 20120218
  9. CINRYZE [Suspect]
     Indication: HEREDITARY ANGIOEDEMA
     Dosage: (1500 UNITS EVERY THREE DAYS)
  10. CINRYZE [Suspect]
     Indication: HEREDITARY ANGIOEDEMA
     Dosage: (1500 UNITS EVERY THREE DAYS)
  11. NORVASC (AMLODIPINE) [Concomitant]
  12. MIRAPEX (PRAMIPEXOLE DIHYDROCHLORIDE) [Concomitant]
  13. BUMEX (BUMETANIDE) [Concomitant]
  14. BENADRYL (DIPHENHYDRAMINE HYDROCHLORIDE) [Concomitant]
  15. POTASSIUM (POTASSIUM) [Concomitant]
  16. RANEXA (RANOLAZINE) [Concomitant]
  17. SINGULAIR (MONTELUKAST) 10MG [Concomitant]
  18. ZANTAC (RANITIDINE HYDROCHLORIDE) [Concomitant]
  19. ZYRTEC (CETIRIZINE HYDROCHLORIDE) [Concomitant]
  20. ZOFRAN (ONDANSETRON) [Concomitant]
  21. BENADRYL (DIPHENHYDRAMINE HYDROCHLORIDE) [Concomitant]

REACTIONS (29)
  - Headache [None]
  - Dizziness [None]
  - Disorientation [None]
  - Incontinence [None]
  - Pain [None]
  - Swelling [None]
  - Fall [None]
  - Loss of consciousness [None]
  - Feeling abnormal [None]
  - Tremor [None]
  - Musculoskeletal disorder [None]
  - Chest pain [None]
  - Yawning [None]
  - Dysphagia [None]
  - Sinus headache [None]
  - Infusion related reaction [None]
  - Dysphonia [None]
  - Hereditary angioedema [None]
  - Disease recurrence [None]
  - Convulsion [None]
  - Asthenia [None]
  - Tracheostomy malfunction [None]
  - Chest pain [None]
  - Dyspnoea [None]
  - Chest discomfort [None]
  - Scar [None]
  - Adhesion [None]
  - Sepsis [None]
  - Thrombosis [None]
